FAERS Safety Report 4520471-X (Version None)
Quarter: 2004Q4

REPORT INFORMATION
  Report Type: 
  Country: None (occurrence: None)
  Receive Date: 20041203
  Receipt Date: 20041123
  Transmission Date: 20050328
  Serious: Yes (Other)
  Sender: FDA-Public Use
  Company Number: 2004097581

PATIENT
  Age: 72 Year
  Sex: Female

DRUGS (11)
  1. DIFLUCAN [Suspect]
     Indication: ILL-DEFINED DISORDER
  2. FLUTICASONE PROPIONATE [Concomitant]
     Indication: CHRONIC OBSTRUCTIVE AIRWAYS DISEASE
     Dosage: 2 IN 1 D, INHALATION
     Route: 055
  3. FLUTICASONE PROPIONATE [Concomitant]
     Indication: EMPHYSEMA
     Dosage: 2 IN 1 D, INHALATION
     Route: 055
  4. MONTELUKAST SODIUM (MONTELUKAST SODIUM) [Concomitant]
  5. ALL OTHER THERAPEUTIC PRODUCTS (ALL OTHER THERAPEUTIC PRODUCTS) [Concomitant]
  6. VALSARTAN (VALSARTAN) [Concomitant]
  7. CONJUGATED ESTROGENS [Concomitant]
  8. PAROXETINE HCL [Concomitant]
  9. LORAZEPAM [Concomitant]
  10. COMBIVENT [Concomitant]
  11. OPHTHALMOLOGICALS (OPHTHALMOLOGICALS) [Concomitant]

REACTIONS (4)
  - DISEASE RECURRENCE [None]
  - DRUG INEFFECTIVE [None]
  - GASTROINTESTINAL DISORDER [None]
  - MUCOCUTANEOUS CANDIDIASIS [None]
